FAERS Safety Report 6730451-1 (Version None)
Quarter: 2010Q2

REPORT INFORMATION
  Report Type: 
  Country: None (occurrence: None)
  Receive Date: 20100518
  Receipt Date: 20100506
  Transmission Date: 20101027
  Serious: Yes (Other)
  Sender: FDA-Public Use
  Company Number: D0063120A

PATIENT
  Age: 35 Year
  Sex: Female

DRUGS (6)
  1. REQUIP [Suspect]
     Dosage: 16MG PER DAY
     Route: 048
  2. AZILECT [Concomitant]
     Dosage: 1MG PER DAY
     Route: 065
  3. DOXEPIN HCL [Concomitant]
     Dosage: 10MG PER DAY
     Route: 065
  4. CEFUROX [Concomitant]
     Dosage: 500MG PER DAY
     Route: 065
  5. BUDIAR [Concomitant]
     Route: 055
     Dates: start: 20100409
  6. SALBUTAMOL [Concomitant]
     Route: 065
     Dates: start: 20100409

REACTIONS (20)
  - ASTHMA [None]
  - COUGH [None]
  - DIZZINESS [None]
  - DRUG ADMINISTRATION ERROR [None]
  - DRUG INEFFECTIVE [None]
  - FALL [None]
  - FATIGUE [None]
  - FEELING ABNORMAL [None]
  - HYPOAESTHESIA [None]
  - MOVEMENT DISORDER [None]
  - MUSCULOSKELETAL STIFFNESS [None]
  - NAUSEA [None]
  - PAIN [None]
  - PANIC ATTACK [None]
  - PNEUMONIA [None]
  - TACHYCARDIA [None]
  - TREMOR [None]
  - VISUAL IMPAIRMENT [None]
  - VOMITING [None]
  - WEIGHT DECREASED [None]
